FAERS Safety Report 25494049 (Version 1)
Quarter: 2025Q2

REPORT INFORMATION
  Report Type: Spontaneous
  Country: GB (occurrence: GB)
  Receive Date: 20250630
  Receipt Date: 20250630
  Transmission Date: 20250716
  Serious: Yes (Other)
  Sender: ESPERION THERAPEUTICS
  Company Number: None

PATIENT

DRUGS (1)
  1. BEMPEDOIC ACID [Suspect]
     Active Substance: BEMPEDOIC ACID
     Indication: Stent placement
     Route: 065
     Dates: start: 20250609

REACTIONS (8)
  - Chest discomfort [Unknown]
  - Arthralgia [Unknown]
  - Musculoskeletal chest pain [Unknown]
  - Lethargy [Unknown]
  - Thirst [Unknown]
  - Dyspnoea [Unknown]
  - Neck pain [Unknown]
  - Musculoskeletal pain [Unknown]
